FAERS Safety Report 7656306 (Version 7)
Quarter: 2012Q4

REPORT INFORMATION
  Report Type: Report from Study
  Country: US (occurrence: US)
  Receive Date: 20101104
  Receipt Date: 20121116
  Transmission Date: 20130627
  Serious: Yes (Death, Hospitalization, Other)
  Sender: FDA-Public Use
  Company Number: US-CELGENEUS-163-20785-10110092

PATIENT
  Age: 78 Year
  Sex: Male
  Weight: 95.1 kg

DRUGS (28)
  1. THALOMID [Suspect]
     Indication: MULTIPLE MYELOMA
     Dosage: 100 Milligram
     Route: 048
     Dates: start: 20080719
  2. THALOMID [Suspect]
     Dosage: 50 Milligram
     Route: 048
     Dates: start: 200811
  3. THALOMID [Suspect]
     Dosage: 50 Milligram
     Route: 048
     Dates: start: 20100814, end: 20100825
  4. MELPHALAN [Suspect]
     Indication: MULTIPLE MYELOMA
     Dosage: 9 milligram/sq. meter
     Route: 048
     Dates: start: 20080719, end: 20090623
  5. PREDNISONE [Suspect]
     Indication: MULTIPLE MYELOMA
     Dosage: 100 Milligram
     Route: 048
     Dates: start: 20080719, end: 20090623
  6. ENTERIC COATED ASPIRIN [Concomitant]
     Indication: DVT PROPHYLAXIS
     Dosage: 325 Milligram
     Route: 048
     Dates: start: 20080719
  7. ENTERIC COATED ASPIRIN [Concomitant]
     Route: 065
     Dates: start: 20080912, end: 20101013
  8. COUMADIN [Concomitant]
     Indication: DVT
     Route: 065
     Dates: start: 20071022, end: 201010
  9. DSS [Concomitant]
     Indication: CONSTIPATION
     Route: 065
     Dates: start: 20071024, end: 201010
  10. FENOFIBRATE [Concomitant]
     Indication: HYPERTRIGLYCERIDEMIA
     Dosage: 134 Milligram
     Route: 065
     Dates: start: 20100909, end: 201010
  11. LIDODERM [Concomitant]
     Indication: PAIN
     Dosage: 700 Milligram
     Route: 062
     Dates: start: 20090609, end: 20100916
  12. METRONIDAZOLE [Concomitant]
     Indication: CLOSTRIDIUM DIFFICILE INFECTION
     Dosage: 1500 Milligram
     Route: 065
     Dates: start: 20101021, end: 201010
  13. OMEGA-3 FATTY ACIDS [Concomitant]
     Indication: HYPERTRIGLYCERIDEMIA
     Dosage: 340mg-1,000mg
     Route: 065
     Dates: start: 20080423, end: 201010
  14. OMEPRAZOLE [Concomitant]
     Indication: GASTROESOPHAGEAL REFLUX
     Dosage: 80 Milligram
     Route: 065
     Dates: start: 20080311, end: 201010
  15. POTASSIUM CHLORIDE [Concomitant]
     Indication: SUPPLEMENTATION THERAPY
     Dosage: 10 Milliequivalents
     Route: 065
     Dates: start: 20090402, end: 201010
  16. PROCHLORPERAZINE [Concomitant]
     Indication: NAUSEA
     Dosage: 10 Milligram
     Route: 065
     Dates: start: 20080818, end: 201010
  17. SIMVASTATIN [Concomitant]
     Indication: HYPERTRIGLYCERIDEMIA
     Dosage: 20 Milligram
     Route: 065
     Dates: start: 20100927, end: 201010
  18. TRICOR [Concomitant]
     Indication: HYPERTRIGLYCERIDEMIA
     Dosage: 48 Milligram
     Route: 065
     Dates: start: 20080423, end: 20100909
  19. FUROSEMIDE [Concomitant]
     Indication: EDEMA OF LEGS
     Dosage: 20 Milligram
     Route: 065
     Dates: start: 20090402
  20. HYDROCODONE-ACETAMINOPHEN [Concomitant]
     Indication: PAIN
     Dosage: 5mg-500mg
     Route: 065
     Dates: start: 20090609
  21. METOPROLOL [Concomitant]
     Indication: ANEURYSM OF AORTA
     Dosage: 25 Milligram
     Route: 065
     Dates: start: 20100702
  22. VITAMIN K [Concomitant]
     Indication: INR INCREASED
     Route: 065
     Dates: start: 201010
  23. PACKED RED BLOOD CELLS [Concomitant]
     Indication: HEMOGLOBIN LOW
     Dosage: 2 units
     Route: 041
     Dates: start: 201010, end: 201010
  24. PACKED RED BLOOD CELLS [Concomitant]
     Route: 041
     Dates: start: 201010, end: 201010
  25. PLATELETS TRANSFUSION [Concomitant]
     Indication: LOW PLATELETS
     Dosage: 1 units
     Route: 041
     Dates: start: 201010, end: 201010
  26. PLATELETS TRANSFUSION [Concomitant]
     Route: 041
     Dates: start: 201010, end: 201010
  27. LORTAB [Concomitant]
     Indication: DRUG USE FOR UNKNOWN INDICATION
     Route: 065
  28. CIPROFLOXACIN [Concomitant]
     Indication: DRUG USE FOR UNKNOWN INDICATION
     Route: 065
     Dates: start: 20080815, end: 20080912

REACTIONS (3)
  - Acute myeloid leukaemia [Fatal]
  - Malignant melanoma [Unknown]
  - Basal cell carcinoma [Unknown]
